FAERS Safety Report 7918368-8 (Version None)
Quarter: 2011Q4

REPORT INFORMATION
  Report Type: 
  Country: None (occurrence: None)
  Receive Date: 20111116
  Receipt Date: 20111108
  Transmission Date: 20120403
  Serious: Yes (Hospitalization, Other)
  Sender: FDA-Public Use
  Company Number: US-ELI_LILLY_AND_COMPANY-US201107008151

PATIENT
  Sex: Female

DRUGS (6)
  1. BIVALIRUDIN [Concomitant]
  2. TPN [Concomitant]
  3. EFFIENT [Suspect]
     Indication: PERCUTANEOUS CORONARY INTERVENTION
     Dosage: 60 MG, ONCE
     Route: 048
     Dates: start: 20110718, end: 20110718
  4. AMIODARONE HCL [Concomitant]
  5. TOPROL-XL [Concomitant]
  6. HEPARIN [Concomitant]

REACTIONS (3)
  - CARDIAC PROCEDURE COMPLICATION [None]
  - POST PROCEDURAL HAEMORRHAGE [None]
  - THROMBOTIC THROMBOCYTOPENIC PURPURA [None]
